FAERS Safety Report 8417453 (Version 3)
Quarter: 2014Q1

REPORT INFORMATION
  Report Type: Spontaneous
  Country: US (occurrence: US)
  Receive Date: 20120221
  Receipt Date: 20140120
  Transmission Date: 20141002
  Serious: No
  Sender: FDA-Public Use
  Company Number: US-BIOGENIDEC-2012BI005207

PATIENT
  Age: 53 Year
  Sex: Male

DRUGS (2)
  1. TYSABRI [Suspect]
     Indication: MULTIPLE SCLEROSIS
     Route: 042
     Dates: start: 20100310, end: 20110914
  2. COP (PRESUME COPAXONE) [Concomitant]

REACTIONS (5)
  - Muscle spasticity [Unknown]
  - Drug specific antibody present [Not Recovered/Not Resolved]
  - Dizziness [Unknown]
  - Headache [Not Recovered/Not Resolved]
  - Fatigue [Not Recovered/Not Resolved]
